FAERS Safety Report 5107849-0 (Version None)
Quarter: 2006Q3

REPORT INFORMATION
  Report Type: 
  Country: None (occurrence: None)
  Receive Date: 20060919
  Receipt Date: 20060907
  Transmission Date: 20061208
  Serious: Yes (Other)
  Sender: FDA-Public Use
  Company Number: US-JNJFOC-20060902154

PATIENT
  Sex: Female
  Weight: 99.79 kg

DRUGS (7)
  1. FENTANYL TRANSDERMAL SYSTEM [Suspect]
     Indication: MIGRAINE
     Route: 062
  2. UNSPECIFIED CHEMOTHERAPY [Suspect]
     Indication: BREAST CANCER
     Route: 065
  3. NEXIUM [Concomitant]
     Indication: GASTROOESOPHAGEAL REFLUX DISEASE
     Route: 048
  4. DICLOFENAC [Concomitant]
     Indication: ARTHRITIS
     Route: 048
  5. DEPAKOTE [Concomitant]
     Indication: MIGRAINE
     Route: 048
  6. WELLBUTRIN [Concomitant]
     Indication: DEPRESSION
     Route: 048
  7. CYMBALTA [Concomitant]
     Indication: DEPRESSION
     Route: 048

REACTIONS (4)
  - ALOPECIA [None]
  - BREAST CANCER [None]
  - MOUTH ULCERATION [None]
  - OFF LABEL USE [None]
